FAERS Safety Report 8209589-8 (Version None)
Quarter: 2012Q1

REPORT INFORMATION
  Report Type: 
  Country: None (occurrence: None)
  Receive Date: 20120314
  Receipt Date: 20120313
  Transmission Date: 20120608
  Serious: Yes (Death, Hospitalization, Other)
  Sender: FDA-Public Use
  Company Number: PHHY2012DE009231

PATIENT
  Sex: Male
  Weight: 80 kg

DRUGS (6)
  1. DURAGESIC-100 [Concomitant]
     Indication: PAIN
     Dosage: 25 MG/H, UNK
     Route: 058
     Dates: start: 20110809, end: 20110825
  2. AFINITOR [Suspect]
     Dosage: 5 MG, QOD
     Route: 048
     Dates: start: 20110615, end: 20110704
  3. BISPHOSPHONATES [Concomitant]
  4. AFINITOR [Suspect]
     Indication: RENAL CELL CARCINOMA
     Dosage: 10 MG, QOD
     Route: 048
     Dates: start: 20110502, end: 20110608
  5. TORSEMIDE [Concomitant]
     Indication: OEDEMA
     Dosage: 20 MG, BID
     Route: 048
     Dates: start: 20110815, end: 20110825
  6. BETA BLOCKING AGENTS [Concomitant]
     Indication: HYPERTENSION

REACTIONS (6)
  - NEOPLASM MALIGNANT [None]
  - THERAPEUTIC RESPONSE DECREASED [None]
  - NEOPLASM PROGRESSION [None]
  - INFLAMMATION [None]
  - HAEMORRHAGE [None]
  - DYSPNOEA [None]
